FAERS Safety Report 9918251 (Version 2)
Quarter: 2014Q1

REPORT INFORMATION
  Report Type: Spontaneous
  Country: US (occurrence: US)
  Receive Date: 20140224
  Receipt Date: 20140304
  Transmission Date: 20141002
  Serious: No
  Sender: FDA-Public Use
  Company Number: US-009507513-1402USA010241

PATIENT
  Age: 51 Year
  Sex: Female

DRUGS (8)
  1. PEGINTRON [Suspect]
     Indication: HEPATITIS C
     Dosage: REDIPEN, STRENGHT: 150MCG/0.5ML, 0.5 ML, QW
     Dates: start: 20140219
  2. REBETOL [Suspect]
     Indication: HEPATITIS C
     Dosage: 1 DF, BID
     Route: 048
     Dates: start: 20140219
  3. MATAT EXTRA STRENGTH [Concomitant]
     Dosage: 1 AS NEED/6 MAX.Q.24H
  4. SOVALDI [Concomitant]
     Dosage: 1 DF, QD
  5. METFORMIN [Concomitant]
     Dosage: 1 DF, BID
  6. ESCITALOPRAM [Concomitant]
     Dosage: 1 DF, HS
  7. LISINOPRIL [Concomitant]
     Dosage: 1 DF, QD
  8. TRAZODONE HYDROCHLORIDE [Concomitant]
     Dosage: 1 DF, HS

REACTIONS (5)
  - Bone pain [Not Recovered/Not Resolved]
  - Feeling cold [Not Recovered/Not Resolved]
  - Headache [Not Recovered/Not Resolved]
  - Fatigue [Not Recovered/Not Resolved]
  - Chills [Not Recovered/Not Resolved]
